FAERS Safety Report 15694682 (Version 2)
Quarter: 2018Q4

REPORT INFORMATION
  Report Type: Report from Study
  Country: US (occurrence: US)
  Receive Date: 20181206
  Receipt Date: 20181212
  Transmission Date: 20190205
  Serious: Yes (Hospitalization)
  Sender: FDA-Public Use
  Company Number: US-BAYER-2018-221595

PATIENT
  Age: 75 Year
  Sex: Male

DRUGS (3)
  1. COPANLISIB. [Suspect]
     Active Substance: COPANLISIB
     Indication: CHOLANGIOCARCINOMA
  2. ADDITIONAL STUDY MEDICATION [Suspect]
     Active Substance: UNSPECIFIED INGREDIENT
     Indication: CHOLANGIOCARCINOMA
  3. ADDITIONAL STUDY MEDICATION [Suspect]
     Active Substance: UNSPECIFIED INGREDIENT
     Indication: CHOLANGIOCARCINOMA

REACTIONS (2)
  - Neutropenic sepsis [None]
  - Anaemia [None]

NARRATIVE: CASE EVENT DATE: 20180705
